FAERS Safety Report 14350043 (Version 1)
Quarter: 2018Q1

REPORT INFORMATION
  Report Type: Spontaneous
  Country: CA (occurrence: CA)
  Receive Date: 20180103
  Receipt Date: 20180103
  Transmission Date: 20180509
  Serious: No
  Sender: FDA-Public Use
  Company Number: None

PATIENT
  Age: 47 Year
  Sex: Female
  Weight: 85 kg

DRUGS (1)
  1. NOVO-LEXIN 500MG TAB [Suspect]
     Active Substance: CEPHALEXIN
     Indication: ARTHROPOD BITE
     Dosage: ?          QUANTITY:1 TABLET(S);?
     Route: 048
     Dates: start: 20170814, end: 20170821

REACTIONS (3)
  - Pruritus [None]
  - Urticaria [None]
  - Chills [None]

NARRATIVE: CASE EVENT DATE: 20170825
